FAERS Safety Report 11376891 (Version 2)
Quarter: 2015Q3

REPORT INFORMATION
  Report Type: Spontaneous
  Country: US (occurrence: US)
  Receive Date: 20150813
  Receipt Date: 20150830
  Transmission Date: 20151125
  Serious: No
  Sender: FDA-Public Use
  Company Number: ALCN2015US004435

PATIENT
  Age: 8 Year
  Sex: Female

DRUGS (1)
  1. CIPRODEX [Suspect]
     Active Substance: CIPROFLOXACIN HYDROCHLORIDE\DEXAMETHASONE
     Indication: OTITIS EXTERNA
     Dosage: 1 GTT, BID
     Route: 001
     Dates: start: 20150709, end: 20150713

REACTIONS (1)
  - Otorrhoea [Recovering/Resolving]

NARRATIVE: CASE EVENT DATE: 20150709
